FAERS Safety Report 10158216 (Version 1)
Quarter: 2014Q2

REPORT INFORMATION
  Report Type: Spontaneous
  Country: BR (occurrence: BR)
  Receive Date: 20140507
  Receipt Date: 20140507
  Transmission Date: 20141212
  Serious: Yes (Hospitalization)
  Sender: FDA-Public Use
  Company Number: BR-MERCK-1405BRA003035

PATIENT
  Age: 51 Year
  Sex: Female
  Weight: 55 kg

DRUGS (4)
  1. MERCILON  CONTI [Suspect]
     Indication: BLOOD OESTROGEN DECREASED
     Dosage: 1 TABLET, QAM
     Route: 048
     Dates: start: 2006, end: 20140315
  2. MERCILON  CONTI [Suspect]
     Dosage: 1 TABLET, QAM
     Route: 048
     Dates: start: 20140430
  3. OMEPRAZOLE [Concomitant]
     Indication: GASTRITIS
     Dosage: 40 MG, QAM
     Route: 048
     Dates: start: 2010
  4. PROPRANOLOL HYDROCHLORIDE [Concomitant]
     Indication: HEART RATE IRREGULAR
     Dosage: 40 MG, BID
     Route: 048
     Dates: start: 2010

REACTIONS (7)
  - Tonsillitis [Recovered/Resolved]
  - Gastric haemorrhage [Recovered/Resolved]
  - Influenza [Unknown]
  - Decreased immune responsiveness [Unknown]
  - Drug administration error [Unknown]
  - Drug administration error [Unknown]
  - Off label use [Unknown]
